FAERS Safety Report 15967941 (Version 1)
Quarter: 2019Q1

REPORT INFORMATION
  Report Type: Spontaneous
  Country: US (occurrence: US)
  Receive Date: 20190215
  Receipt Date: 20190215
  Transmission Date: 20190418
  Serious: Yes (Life-Threatening, Hospitalization, Disabling, Other)
  Sender: FDA-Public Use
  Company Number: None

PATIENT

DRUGS (1)
  1. MUCINEX [Suspect]
     Active Substance: GUAIFENESIN
     Indication: MALAISE
     Dosage: ?          QUANTITY:20 DOSING CUP;?
     Route: 048
     Dates: start: 20181215, end: 20181216

REACTIONS (8)
  - Dry mouth [None]
  - Wheezing [None]
  - Drug ineffective [None]
  - Dyspnoea [None]
  - Increased viscosity of upper respiratory secretion [None]
  - Nasal dryness [None]
  - Paranasal sinus hyposecretion [None]
  - Dry eye [None]

NARRATIVE: CASE EVENT DATE: 20181218
